FAERS Safety Report 6840588-4 (Version None)
Quarter: 2010Q3

REPORT INFORMATION
  Report Type: 
  Country: None (occurrence: None)
  Receive Date: 20100714
  Receipt Date: 20100712
  Transmission Date: 20110219
  Serious: Yes (Hospitalization)
  Sender: FDA-Public Use
  Company Number: B0664014A

PATIENT
  Sex: Female

DRUGS (7)
  1. AUGMENTIN '125' [Suspect]
     Indication: ERYSIPELAS
     Dosage: 1G TWICE PER DAY
     Route: 048
     Dates: start: 20100511, end: 20100514
  2. PREVISCAN [Concomitant]
     Dosage: 20MG PER DAY
     Route: 048
     Dates: start: 20090101
  3. ALLOPURINOL [Concomitant]
     Dosage: 100MG PER DAY
     Route: 048
     Dates: start: 20090101
  4. LASIX [Concomitant]
     Dosage: 40MG PER DAY
     Route: 048
     Dates: start: 20090101, end: 20100514
  5. EUPRESSYL [Concomitant]
     Dosage: 30MG PER DAY
     Route: 048
     Dates: start: 20090101
  6. TRIATEC [Concomitant]
     Dosage: 2.5MG PER DAY
     Route: 048
     Dates: start: 20090101, end: 20100514
  7. ENDOTELON [Concomitant]
     Dosage: 150MG TWICE PER DAY
     Route: 048
     Dates: start: 20090101, end: 20100514

REACTIONS (2)
  - DIARRHOEA [None]
  - RENAL FAILURE ACUTE [None]
